FAERS Safety Report 18339430 (Version 2)
Quarter: 2021Q3

REPORT INFORMATION
  Report Type: Spontaneous
  Country: US (occurrence: US)
  Receive Date: 20201002
  Receipt Date: 20210701
  Transmission Date: 20211014
  Serious: Yes (Hospitalization)
  Sender: FDA-Public Use
  Company Number: US-PFIZER INC-2020381180

PATIENT
  Age: 67 Year
  Sex: Male
  Weight: 89.36 kg

DRUGS (2)
  1. DILANTIN [Suspect]
     Active Substance: PHENYTOIN
     Indication: SEIZURE
     Dosage: 100 MG, DAILY
     Route: 048
     Dates: start: 1974
  2. PHENOBARBITAL [PHENOBARBITAL SODIUM] [Concomitant]
     Active Substance: PHENOBARBITAL SODIUM
     Indication: SEIZURE
     Dosage: 30 MG, 3X/DAY
     Route: 048
     Dates: start: 1974

REACTIONS (3)
  - Bedridden [Unknown]
  - Drug level increased [Unknown]
  - Weight decreased [Unknown]
